FAERS Safety Report 8273014-1 (Version None)
Quarter: 2012Q2

REPORT INFORMATION
  Report Type: 
  Country: None (occurrence: None)
  Receive Date: 20120411
  Receipt Date: 20120330
  Transmission Date: 20120825
  Serious: Yes (Hospitalization)
  Sender: FDA-Public Use
  Company Number: US-JNJFOC-20120401303

PATIENT
  Sex: Male
  Weight: 60 kg

DRUGS (6)
  1. ALLEGRA [Concomitant]
  2. REMICADE [Suspect]
     Indication: INFLAMMATORY BOWEL DISEASE
     Route: 042
     Dates: start: 20110118
  3. WELLBUTRIN [Suspect]
     Indication: PRODUCT USED FOR UNKNOWN INDICATION
  4. PRISTIQ [Concomitant]
  5. RITALIN [Concomitant]
  6. PREVACID [Concomitant]

REACTIONS (1)
  - PANCREATITIS ACUTE [None]
